FAERS Safety Report 21824092 (Version 1)
Quarter: 2023Q1

REPORT INFORMATION
  Report Type: Spontaneous
  Country: FR (occurrence: FR)
  Receive Date: 20230105
  Receipt Date: 20230105
  Transmission Date: 20230418
  Serious: Yes (Disabling, Other)
  Sender: FDA-Public Use
  Company Number: None

PATIENT
  Age: 53 Year
  Sex: Male
  Weight: 73 kg

DRUGS (16)
  1. IFOSFAMIDE [Suspect]
     Active Substance: IFOSFAMIDE
     Indication: Hodgkin^s disease
     Dosage: 25200 MG, 1 TOTAL
     Route: 042
     Dates: start: 20021127, end: 200302
  2. CISPLATIN [Suspect]
     Active Substance: CISPLATIN
     Indication: Hodgkin^s disease
     Dosage: 180 MG, 1 TOTAL
     Route: 042
     Dates: start: 20021218, end: 20021221
  3. NOVANTRONE [Suspect]
     Active Substance: MITOXANTRONE HYDROCHLORIDE
     Indication: Hodgkin^s disease
     Dosage: 78 MG, 1 TOTAL
     Route: 042
     Dates: start: 20021127, end: 20030119
  4. VINBLASTINE SULFATE [Suspect]
     Active Substance: VINBLASTINE SULFATE
     Indication: Hodgkin^s disease
     Dosage: 81 MG, 1 TOTAL
     Route: 042
     Dates: start: 20020713, end: 20021021
  5. SOLU-MEDROL [Suspect]
     Active Substance: METHYLPREDNISOLONE SODIUM SUCCINATE
     Indication: Hodgkin^s disease
     Dosage: 4220 MG, 1 TOTAL
     Route: 042
     Dates: start: 20020713, end: 20030727
  6. METHOTREXATE [Suspect]
     Active Substance: METHOTREXATE
     Indication: Hodgkin^s disease
     Dosage: 390 MG, 1 TOTAL
     Route: 042
     Dates: start: 20021127, end: 20030118
  7. DOXORUBICIN [Suspect]
     Active Substance: DOXORUBICIN
     Indication: Hodgkin^s disease
     Dosage: 395 MG, 1 TOTAL
     Route: 042
     Dates: start: 20020713, end: 20021021
  8. ALKERAN [Suspect]
     Active Substance: MELPHALAN
     Indication: Hodgkin^s disease
     Dosage: 250 MG, 1 TOTAL
     Route: 042
     Dates: start: 20030727, end: 20030727
  9. BLEOMYCIN [Suspect]
     Active Substance: BLEOMYCIN SULFATE
     Indication: Hodgkin^s disease
     Dosage: 158 MG, 1 TOTAL
     Route: 042
     Dates: start: 20020713, end: 20021021
  10. BICNU [Suspect]
     Active Substance: CARMUSTINE
     Indication: Bone marrow conditioning regimen
     Dosage: 540 MG, 1 TOTAL
     Route: 042
     Dates: start: 20030722, end: 20030727
  11. DACARBAZINE [Suspect]
     Active Substance: DACARBAZINE
     Indication: Hodgkin^s disease
     Dosage: 4800 MG, 1 TOTAL
     Route: 042
     Dates: start: 20020713, end: 20021021
  12. ETOPOSIDE [Suspect]
     Active Substance: ETOPOSIDE
     Indication: Hodgkin^s disease
     Dosage: 4900 MG, 1 TOTAL
     Route: 042
     Dates: start: 20021127, end: 20030726
  13. CYTARABINE [Suspect]
     Active Substance: CYTARABINE
     Indication: Hodgkin^s disease
     Dosage: 6400 MG, 1 TOTAL
     Route: 042
     Dates: start: 20021222, end: 20030726
  14. MESNA [Concomitant]
     Active Substance: MESNA
     Indication: Product used for unknown indication
     Route: 065
  15. LEUCOVORIN CALCIUM [Concomitant]
     Active Substance: LEUCOVORIN CALCIUM
     Indication: Product used for unknown indication
     Route: 065
  16. ONDANSETRON [Concomitant]
     Active Substance: ONDANSETRON
     Indication: Product used for unknown indication
     Dosage: UNK
     Route: 065

REACTIONS (1)
  - Second primary malignancy [Recovering/Resolving]

NARRATIVE: CASE EVENT DATE: 20210201
